FAERS Safety Report 23735495 (Version 1)
Quarter: 2024Q2

REPORT INFORMATION
  Report Type: Other
  Country: US (occurrence: US)
  Receive Date: 20240412
  Receipt Date: 20240412
  Transmission Date: 20240716
  Serious: Yes (Hospitalization, Other)
  Sender: FDA-Public Use
  Company Number: USMLMSERVICE-20240328-4916212-2

PATIENT
  Age: 42 Year
  Sex: Female

DRUGS (1)
  1. OXYGEN [Suspect]
     Active Substance: OXYGEN
     Indication: Extremity necrosis
     Route: 065

REACTIONS (1)
  - Pulmonary oedema [Recovered/Resolved]
